FAERS Safety Report 13941100 (Version 1)
Quarter: 2017Q3

REPORT INFORMATION
  Report Type: Spontaneous
  Country: US (occurrence: US)
  Receive Date: 20170906
  Receipt Date: 20170906
  Transmission Date: 20171127
  Serious: Yes (Death, Hospitalization, Other)
  Sender: FDA-Public Use
  Company Number: US-IMPAX LABORATORIES, INC-2017-IPXL-02579

PATIENT
  Age: 68 Year
  Sex: Male

DRUGS (3)
  1. NPH INSULIN [Suspect]
     Active Substance: INSULIN BEEF
     Indication: TYPE 2 DIABETES MELLITUS
     Dosage: UNK
     Route: 065
  2. METFORMIN HYDROCHLORIDE ER [Suspect]
     Active Substance: METFORMIN HYDROCHLORIDE
     Indication: TYPE 2 DIABETES MELLITUS
     Dosage: UNK
     Route: 065
  3. NPH INSULIN [Suspect]
     Active Substance: INSULIN BEEF
     Dosage: UPTO  280 UNITS/HOUR
     Route: 065

REACTIONS (5)
  - Cardiac arrest [Unknown]
  - Acute kidney injury [Unknown]
  - Myocardial infarction [Unknown]
  - Insulin resistance [Recovered/Resolved]
  - Brain injury [Fatal]
